FAERS Safety Report 6031141-3 (Version None)
Quarter: 2008Q4

REPORT INFORMATION
  Report Type: 
  Country: None (occurrence: None)
  Receive Date: 20081222
  Receipt Date: 20081119
  Transmission Date: 20090506
  Serious: No
  Sender: FDA-Public Use
  Company Number: US-WYE-H06921908

PATIENT
  Age: 57 Year
  Sex: Female

DRUGS (2)
  1. PRISTIQ [Suspect]
     Indication: DEPRESSION
     Dosage: 100 MG 1X PER 1 DAY, ORAL : 50 MG 1X PER 1 DAY, ORAL
     Route: 048
     Dates: start: 20081001, end: 20081028
  2. PRISTIQ [Suspect]
     Indication: DEPRESSION
     Dosage: 100 MG 1X PER 1 DAY, ORAL : 50 MG 1X PER 1 DAY, ORAL
     Route: 048
     Dates: start: 20081029

REACTIONS (5)
  - ALOPECIA [None]
  - DIARRHOEA [None]
  - DRUG INEFFECTIVE [None]
  - DRUG WITHDRAWAL SYNDROME [None]
  - INCREASED APPETITE [None]
